FAERS Safety Report 6074821-6 (Version None)
Quarter: 2009Q1

REPORT INFORMATION
  Report Type: 
  Country: None (occurrence: None)
  Receive Date: 20090210
  Receipt Date: 20090210
  Transmission Date: 20090719
  Serious: No
  Sender: FDA-Public Use
  Company Number: None

PATIENT
  Age: 43 Year
  Sex: Female
  Weight: 83.9154 kg

DRUGS (1)
  1. AMBIEN [Suspect]

REACTIONS (5)
  - ABNORMAL SLEEP-RELATED EVENT [None]
  - AMNESIA [None]
  - DRUG INEFFECTIVE [None]
  - DRUG TOLERANCE INCREASED [None]
  - SOMNAMBULISM [None]
